FAERS Safety Report 24984196 (Version 1)
Quarter: 2025Q1

REPORT INFORMATION
  Report Type: Other
  Country: JP (occurrence: JP)
  Receive Date: 20250219
  Receipt Date: 20250219
  Transmission Date: 20250408
  Serious: Yes (Hospitalization)
  Sender: ANI
  Company Number: JP-ANIPHARMA-015614

PATIENT
  Sex: Male

DRUGS (7)
  1. MEXILETINE [Suspect]
     Active Substance: MEXILETINE
     Indication: Torsade de pointes
  2. DEXMEDETOMIDINE [Concomitant]
     Active Substance: DEXMEDETOMIDINE
     Indication: Torsade de pointes
  3. VERAPAMIL [Concomitant]
     Active Substance: VERAPAMIL HYDROCHLORIDE
     Indication: Torsade de pointes
  4. MIDAZOLAM [Concomitant]
     Active Substance: MIDAZOLAM
     Indication: Torsade de pointes
  5. NADOLOL [Concomitant]
     Active Substance: NADOLOL
     Indication: Torsade de pointes
  6. MEXILETINE [Suspect]
     Active Substance: MEXILETINE
     Indication: Torsade de pointes
  7. VERAPAMIL [Concomitant]
     Active Substance: VERAPAMIL HYDROCHLORIDE
     Indication: Torsade de pointes
     Route: 048

REACTIONS (2)
  - Ventricular extrasystoles [Recovering/Resolving]
  - Drug ineffective [Unknown]
